FAERS Safety Report 25467751 (Version 1)
Quarter: 2025Q2

REPORT INFORMATION
  Report Type: Spontaneous
  Country: US (occurrence: None)
  Receive Date: 20250622
  Receipt Date: 20250622
  Transmission Date: 20250717
  Serious: Yes (Disabling)
  Sender: FDA-CTU
  Company Number: None

PATIENT
  Age: 49 Year
  Sex: Female
  Weight: 58.5 kg

DRUGS (4)
  1. FLUOXETINE [Suspect]
     Active Substance: FLUOXETINE HYDROCHLORIDE
     Indication: Panic disorder
     Dates: start: 19970105, end: 20230225
  2. ZYPREXA [Suspect]
     Active Substance: OLANZAPINE
  3. VALIUM [Suspect]
     Active Substance: DIAZEPAM
  4. LAMOTRIGINE [Suspect]
     Active Substance: LAMOTRIGINE

REACTIONS (27)
  - Off label use [None]
  - Anxiety [None]
  - Akathisia [None]
  - Electric shock sensation [None]
  - Nervous system disorder [None]
  - Skin burning sensation [None]
  - Head discomfort [None]
  - Insomnia [None]
  - Autonomic nervous system imbalance [None]
  - Restlessness [None]
  - Muscle spasms [None]
  - Muscle contractions involuntary [None]
  - Muscle rigidity [None]
  - Suicidal ideation [None]
  - Pain [None]
  - Hyperacusis [None]
  - Gastrointestinal motility disorder [None]
  - Weight decreased [None]
  - Malabsorption [None]
  - Intracranial pressure increased [None]
  - Autonomic nervous system imbalance [None]
  - Drug withdrawal syndrome [None]
  - Neuralgia [None]
  - Inappropriate schedule of product discontinuation [None]
  - Nerve injury [None]
  - Product communication issue [None]
  - Injury [None]

NARRATIVE: CASE EVENT DATE: 20230717
